FAERS Safety Report 4946159-9 (Version None)
Quarter: 2006Q1

REPORT INFORMATION
  Report Type: 
  Country: None (occurrence: None)
  Receive Date: 20060118
  Receipt Date: 20050722
  Transmission Date: 20060701
  Serious: Yes (Other)
  Sender: FDA-Public Use
  Company Number: BDI-007371

PATIENT
  Age: 47 Year
  Sex: Female
  Weight: 81 kg

DRUGS (2)
  1. PROHANCE [Suspect]
     Indication: NUCLEAR MAGNETIC RESONANCE IMAGING
     Dosage: 18 ML, ONCE; IV
     Route: 042
     Dates: start: 20050715, end: 20050715
  2. PROHANCE [Suspect]
     Indication: SCIATICA
     Dosage: 18 ML, ONCE; IV
     Route: 042
     Dates: start: 20050715, end: 20050715

REACTIONS (8)
  - CHEST DISCOMFORT [None]
  - COUGH [None]
  - DIZZINESS [None]
  - DYSPNOEA [None]
  - PHARYNX DISCOMFORT [None]
  - PRURITUS [None]
  - SNEEZING [None]
  - URTICARIA [None]
